FAERS Safety Report 12483302 (Version 14)
Quarter: 2018Q4

REPORT INFORMATION
  Report Type: Report from Study
  Country: JP (occurrence: JP)
  Receive Date: 20160621
  Receipt Date: 20181001
  Transmission Date: 20190204
  Serious: Yes (Death, Hospitalization, Other)
  Sender: FDA-Public Use
  Company Number: JP-BRISTOL-MYERS SQUIBB COMPANY-BMS-2015-028381

PATIENT
  Age: 82 Year
  Sex: Male

DRUGS (1)
  1. NIVOLUMAB [Suspect]
     Active Substance: NIVOLUMAB
     Indication: MALIGNANT MELANOMA
     Dosage: 2 MG/KG, Q3WK
     Route: 041
     Dates: start: 20141216, end: 20160608

REACTIONS (19)
  - Dermatitis psoriasiform [Recovered/Resolved]
  - Shock [Recovered/Resolved]
  - C-reactive protein increased [Unknown]
  - Type 1 diabetes mellitus [Not Recovered/Not Resolved]
  - Off label use [Unknown]
  - Malaise [Recovered/Resolved]
  - Hypothyroidism [Not Recovered/Not Resolved]
  - Drug ineffective [Unknown]
  - Tri-iodothyronine free increased [Unknown]
  - Hypoaesthesia [Recovered/Resolved]
  - Pain in extremity [Unknown]
  - Death [Fatal]
  - Pain [Recovered/Resolved]
  - Rash [Recovered/Resolved]
  - Thyroxine free increased [Unknown]
  - Raynaud^s phenomenon [Recovered/Resolved]
  - Diabetic ketoacidosis [Unknown]
  - Pyrexia [Recovered/Resolved]
  - Dysaesthesia [Recovered/Resolved]

NARRATIVE: CASE EVENT DATE: 20160406
